FAERS Safety Report 8435677-7 (Version None)
Quarter: 2012Q2

REPORT INFORMATION
  Report Type: 
  Country: None (occurrence: None)
  Receive Date: 20120614
  Receipt Date: 20120606
  Transmission Date: 20120825
  Serious: Yes (Hospitalization)
  Sender: FDA-Public Use
  Company Number: US-JNJFOC-20120510648

PATIENT
  Sex: Female
  Weight: 52.2 kg

DRUGS (11)
  1. ANTIBIOTICS [Concomitant]
     Indication: INFLAMMATORY BOWEL DISEASE
  2. NUBAIN [Concomitant]
  3. CHOLECALCIFEROL [Concomitant]
  4. OXYCODONE HCL [Concomitant]
  5. IRON [Concomitant]
  6. HUMIRA [Concomitant]
     Dates: start: 20120107, end: 20120301
  7. BACITRACIN / POLYMYXIN [Concomitant]
  8. OMEPRAZOLE [Concomitant]
  9. REMICADE [Suspect]
     Indication: INFLAMMATORY BOWEL DISEASE
     Route: 042
     Dates: start: 20060703
  10. AZITHROMYCIN [Concomitant]
  11. ACETAMINOPHEN [Concomitant]

REACTIONS (1)
  - WOUND DEHISCENCE [None]
